FAERS Safety Report 4977057-2 (Version None)
Quarter: 2006Q2

REPORT INFORMATION
  Report Type: 
  Country: None (occurrence: None)
  Receive Date: 20060419
  Receipt Date: 20060224
  Transmission Date: 20061013
  Serious: Yes (Death)
  Sender: FDA-Public Use
  Company Number: IS-NOVOPROD-251170

PATIENT
  Age: 71 Year
  Sex: Female

DRUGS (1)
  1. NOVOSEVEN [Suspect]
     Indication: CARDIAC OPERATION
     Dosage: UNK, UNK
     Dates: start: 20051215, end: 20051215

REACTIONS (2)
  - CEREBRAL THROMBOSIS [None]
  - PULMONARY ARTERY THROMBOSIS [None]
